APPROVED DRUG PRODUCT: ACETAMINOPHEN
Active Ingredient: ACETAMINOPHEN
Strength: 120MG
Dosage Form/Route: SUPPOSITORY;RECTAL
Application: N018337 | Product #003
Applicant: TARO PHARMACEUTICAL INDUSTRIES LTD
Approved: Sep 12, 1983 | RLD: Yes | RS: No | Type: OTC